FAERS Safety Report 25788355 (Version 2)
Quarter: 2025Q3

REPORT INFORMATION
  Report Type: Spontaneous
  Country: US (occurrence: US)
  Receive Date: 20250910
  Receipt Date: 20250930
  Transmission Date: 20251020
  Serious: Yes (Hospitalization)
  Sender: Krystal Biotech
  Company Number: US-KRYSTAL BIOTECH NETHERLANDS B.V-2025KRYUS00141

PATIENT
  Age: 35 Year
  Sex: Female

DRUGS (1)
  1. VYJUVEK [Suspect]
     Active Substance: BEREMAGENE GEPERPAVEC-SVDT
     Indication: Epidermolysis bullosa
     Route: 061
     Dates: start: 20230928

REACTIONS (1)
  - Wound haemorrhage [Recovered/Resolved]
